FAERS Safety Report 5516646-3 (Version None)
Quarter: 2007Q4

REPORT INFORMATION
  Report Type: 
  Country: None (occurrence: None)
  Receive Date: 20071114
  Receipt Date: 20070420
  Transmission Date: 20080405
  Serious: No
  Sender: FDA-Public Use
  Company Number: A0645900A

PATIENT
  Age: 77 Year
  Sex: Male

DRUGS (12)
  1. COMMIT [Suspect]
     Indication: SMOKING CESSATION THERAPY
     Dosage: 2MG SEE DOSAGE TEXT
     Route: 002
  2. TRILEPTAL [Concomitant]
     Dosage: 150MG THREE TIMES PER DAY
  3. GABAPENTIN [Concomitant]
     Dosage: 300MG TWICE PER DAY
  4. WELLBUTRIN [Concomitant]
     Dosage: 150MG TWICE PER DAY
  5. PAXIL [Concomitant]
     Dosage: 40MG PER DAY
  6. ALPRAZOLAM [Concomitant]
     Dosage: .25MG THREE TIMES PER DAY
  7. FUROSEMIDE [Concomitant]
     Dosage: 20MG PER DAY
  8. DIOVAN [Concomitant]
     Dosage: 160MG TWICE PER DAY
  9. CARTIA XT [Concomitant]
     Dosage: 180MG PER DAY
  10. ALBUTEROL [Concomitant]
  11. SPIRIVA [Concomitant]
     Dosage: 18MCG PER DAY
  12. EXTRA STRENGTH TYLENOL [Concomitant]

REACTIONS (3)
  - ABDOMINAL DISTENSION [None]
  - ABDOMINAL PAIN [None]
  - ABDOMINAL SYMPTOM [None]
